FAERS Safety Report 24578606 (Version 3)
Quarter: 2025Q3

REPORT INFORMATION
  Report Type: Report from Study
  Country: US (occurrence: US)
  Receive Date: 20241105
  Receipt Date: 20250810
  Transmission Date: 20251021
  Serious: Yes (Hospitalization, Other)
  Sender: ALEXION PHARMACEUTICALS
  Company Number: US-ASTRAZENECA-202410USA023920US

PATIENT
  Age: 62 Year
  Sex: Female

DRUGS (2)
  1. LYNPARZA [Suspect]
     Active Substance: OLAPARIB
     Indication: Pancreatic carcinoma
     Dosage: 300 MILLIGRAM, BID
     Dates: start: 20241017, end: 20241111
  2. LYNPARZA [Suspect]
     Active Substance: OLAPARIB
     Dosage: 300 MILLIGRAM, BID
     Dates: start: 20241017, end: 20241018

REACTIONS (4)
  - Internal haemorrhage [Unknown]
  - Radiation associated haemorrhage [Unknown]
  - Nausea [Unknown]
  - Underdose [Unknown]

NARRATIVE: CASE EVENT DATE: 20241018
